FAERS Safety Report 5153857-3 (Version None)
Quarter: 2006Q4

REPORT INFORMATION
  Report Type: 
  Country: None (occurrence: None)
  Receive Date: 20061120
  Receipt Date: 20061107
  Transmission Date: 20070319
  Serious: Yes (Other)
  Sender: FDA-Public Use
  Company Number: PHRM2006FR03012

PATIENT
  Age: 86 Year
  Sex: Female

DRUGS (3)
  1. DEROXAT [Suspect]
     Dosage: 10 MG, QD
     Route: 048
     Dates: end: 20061001
  2. EXELON [Suspect]
     Dosage: 1.5 MG, BID
     Route: 048
     Dates: start: 20060601, end: 20060601
  3. EXELON [Suspect]
     Dosage: 3 MG, BID
     Route: 048
     Dates: start: 20060601, end: 20061001

REACTIONS (3)
  - FALL [None]
  - MYOCLONUS [None]
  - NAUSEA [None]
